FAERS Safety Report 9495305 (Version 1)
Quarter: 2013Q3

REPORT INFORMATION
  Report Type: Spontaneous
  Country: GB (occurrence: None)
  Receive Date: 20130828
  Receipt Date: 20130828
  Transmission Date: 20140515
  Serious: Yes (Other)
  Sender: FDA-Public Use
  Company Number: GER/UKI/13/0034277

PATIENT
  Age: 55 Year
  Sex: Female
  Weight: 94 kg

DRUGS (13)
  1. LAMOTRIGINE [Suspect]
     Indication: PRODUCT USED FOR UNKNOWN INDICATION
  2. AVEENO (AVENA SATIVA FLUID EXTRACT) [Concomitant]
  3. CETIRIZINE (CETIRIZINE) [Concomitant]
  4. CO-CODAMOL (PANADEINE CO) [Concomitant]
  5. FEXOFENADINE [Concomitant]
  6. FLUOXETINE (FLUOXETINE) [Concomitant]
  7. LEVOTHYROXINE (LEVOTHYROXINE) [Concomitant]
  8. LIDOCAINE (LIDOCAINE) [Concomitant]
  9. MACROGOL (MACROGOL) [Concomitant]
  10. PREDNISOLONE (PREDNISOLONE) [Concomitant]
  11. PREGABALIN (PREGABALIN) [Concomitant]
  12. PRIADEL (LITHIUM CARBONATE) [Concomitant]
  13. ZOPICLONE (ZOPICLONE) [Concomitant]

REACTIONS (4)
  - Skin exfoliation [None]
  - Rash erythematous [None]
  - Drug eruption [None]
  - Neutropenia [None]
